FAERS Safety Report 5247235-6 (Version None)
Quarter: 2007Q1

REPORT INFORMATION
  Report Type: 
  Country: None (occurrence: None)
  Receive Date: 20070222
  Receipt Date: 20070222
  Transmission Date: 20070707
  Serious: Yes (Death)
  Sender: FDA-Public Use
  Company Number: None

PATIENT
  Age: 67 Year
  Sex: Female
  Weight: 135.1719 kg

DRUGS (4)
  1. FLUDARABINE [Suspect]
     Indication: ACUTE MYELOID LEUKAEMIA
     Dosage: 30MG QD X 5 IV
     Route: 042
     Dates: start: 20030930, end: 20031004
  2. TOPOTECAN [Suspect]
     Indication: ACUTE MYELOID LEUKAEMIA
     Dosage: 1.7MG QD X 3 IV
     Route: 042
     Dates: start: 20030930, end: 20031003
  3. CARBOPLATIN [Suspect]
     Indication: ACUTE MYELOID LEUKAEMIA
     Dosage: 205 MG QD X5 IV
     Route: 042
     Dates: start: 20030930, end: 20031005
  4. THALIDOMIDE [Suspect]
     Indication: ACUTE MYELOID LEUKAEMIA
     Dosage: 100 MG
     Dates: start: 20021001, end: 20030701

REACTIONS (5)
  - ABSCESS [None]
  - BACTEROIDES INFECTION [None]
  - DIVERTICULAR PERFORATION [None]
  - HYPOTENSION [None]
  - SEPSIS [None]
